FAERS Safety Report 24533764 (Version 1)
Quarter: 2024Q4

REPORT INFORMATION
  Report Type: Spontaneous
  Country: US (occurrence: None)
  Receive Date: 20241021
  Receipt Date: 20241021
  Transmission Date: 20250115
  Serious: Yes (Death, Hospitalization)
  Sender: Public
  Company Number: None

PATIENT
  Age: 77 Year
  Sex: Male
  Weight: 99 kg

DRUGS (1)
  1. KEYTRUDA [Suspect]
     Active Substance: PEMBROLIZUMAB
     Indication: Malignant melanoma

REACTIONS (7)
  - Diarrhoea [None]
  - Fatigue [None]
  - Nausea [None]
  - Influenza like illness [None]
  - Autoimmune disorder [None]
  - Pneumonitis [None]
  - Hepatic failure [None]
